FAERS Safety Report 10201157 (Version 1)
Quarter: 2014Q2

REPORT INFORMATION
  Report Type: Spontaneous
  Country: GB (occurrence: FR)
  Receive Date: 20140528
  Receipt Date: 20140528
  Transmission Date: 20141212
  Serious: Yes (Hospitalization)
  Sender: FDA-Public Use
  Company Number: GB-SA-2014SA063416

PATIENT
  Age: 48 Year
  Sex: Female

DRUGS (16)
  1. CORTANCYL [Suspect]
     Indication: PRODUCT USED FOR UNKNOWN INDICATION
     Dosage: STRENGTH: 20 MG
     Route: 065
  2. CORTANCYL [Suspect]
     Indication: PRODUCT USED FOR UNKNOWN INDICATION
     Dosage: STRENGTH: 5 MG
     Route: 065
  3. ANTI-THYMOCYTE GLOBULIN (RABBIT) [Suspect]
     Indication: ACUTE GRAFT VERSUS HOST DISEASE
     Route: 042
     Dates: start: 20131205, end: 20131208
  4. NEORAL [Suspect]
     Indication: PRODUCT USED FOR UNKNOWN INDICATION
     Route: 048
  5. INOLIMOMAB [Suspect]
     Indication: ACUTE GRAFT VERSUS HOST DISEASE
     Route: 042
     Dates: start: 20131213, end: 20131227
  6. ROVALCYTE [Concomitant]
  7. WELLVONE [Concomitant]
  8. NOXAFIL [Concomitant]
  9. ORACILLINE [Concomitant]
  10. XANAX [Concomitant]
  11. INEXIUM [Concomitant]
  12. DEBRIDAT [Concomitant]
  13. PARACETAMOL [Concomitant]
  14. OXYNORMORO [Concomitant]
  15. NERISONE [Concomitant]
  16. DEXERYL [Concomitant]

REACTIONS (14)
  - Klebsiella sepsis [Unknown]
  - Cytomegalovirus infection [Unknown]
  - Aplasia [Recovered/Resolved]
  - Epstein-Barr virus infection [None]
  - Diabetes mellitus [None]
  - Febrile bone marrow aplasia [None]
  - Graft versus host disease in skin [None]
  - Treatment failure [None]
  - Headache [None]
  - Oedema peripheral [None]
  - Rales [None]
  - Abdominal pain [None]
  - Oropharyngeal candidiasis [None]
  - Device related infection [None]
